FAERS Safety Report 14170398 (Version 4)
Quarter: 2017Q4

REPORT INFORMATION
  Report Type: Report from Study
  Country: US (occurrence: US)
  Receive Date: 20171108
  Receipt Date: 20171208
  Transmission Date: 20180321
  Serious: Yes (Other)
  Sender: FDA-Public Use
  Company Number: US-PFIZER INC-2017456644

PATIENT
  Age: 51 Year
  Sex: Female

DRUGS (2)
  1. MISTLETOE [Concomitant]
     Active Substance: VISCUM ALBUM FRUITING TOP
     Dosage: UNK (INFUSION)
     Route: 050
  2. IBRANCE [Suspect]
     Active Substance: PALBOCICLIB
     Indication: BREAST CANCER
     Dosage: 125 MG, 1X/DAY
     Route: 048
     Dates: start: 20171019

REACTIONS (13)
  - Dizziness [Recovered/Resolved]
  - Abdominal pain [Recovered/Resolved]
  - Platelet count decreased [Unknown]
  - Fatigue [Unknown]
  - Nausea [Recovering/Resolving]
  - Influenza like illness [Not Recovered/Not Resolved]
  - Eye haemorrhage [Recovering/Resolving]
  - Arthralgia [Not Recovered/Not Resolved]
  - Chills [Unknown]
  - Insomnia [Unknown]
  - White blood cell count decreased [Unknown]
  - Increased appetite [Unknown]
  - Hot flush [Unknown]

NARRATIVE: CASE EVENT DATE: 2017
